FAERS Safety Report 7953691-2 (Version None)
Quarter: 2011Q4

REPORT INFORMATION
  Report Type: 
  Country: None (occurrence: None)
  Receive Date: 20111202
  Receipt Date: 20110418
  Transmission Date: 20120403
  Serious: Yes (Death)
  Sender: FDA-Public Use
  Company Number: US-TEVA-277080USA

PATIENT
  Sex: Male

DRUGS (1)
  1. ALBUTEROL SULATE [Suspect]
     Route: 055

REACTIONS (1)
  - DEATH [None]
